FAERS Safety Report 13288559 (Version 3)
Quarter: 2017Q3

REPORT INFORMATION
  Report Type: Report from Study
  Country: DE (occurrence: DE)
  Receive Date: 20170302
  Receipt Date: 20170923
  Transmission Date: 20171127
  Serious: Yes (Hospitalization)
  Sender: FDA-Public Use
  Company Number: DE-ROCHE-1900471

PATIENT
  Age: 62 Year
  Sex: Female

DRUGS (6)
  1. BISOPROLOL [Concomitant]
     Active Substance: BISOPROLOL
  2. TOCILIZUMAB. [Suspect]
     Active Substance: TOCILIZUMAB
     Indication: RHEUMATOID ARTHRITIS
     Route: 058
     Dates: end: 201604
  3. PREDNISOLON [Concomitant]
     Active Substance: PREDNISOLONE
  4. PANTOPRAZOL [Concomitant]
     Active Substance: PANTOPRAZOLE SODIUM
  5. AMBROXOL [Concomitant]
     Active Substance: AMBROXOL
     Route: 065
  6. PROCORALAN [Concomitant]
     Active Substance: IVABRADINE

REACTIONS (7)
  - Post procedural complication [Recovered/Resolved]
  - Gastrooesophageal reflux disease [Recovered/Resolved]
  - Hiatus hernia [Recovered/Resolved]
  - Barrett^s oesophagus [Recovered/Resolved]
  - Gastrointestinal stromal tumour [Unknown]
  - Dyspepsia [Unknown]
  - Pneumonia [Unknown]

NARRATIVE: CASE EVENT DATE: 20151101
